FAERS Safety Report 16010475 (Version 1)
Quarter: 2019Q1

REPORT INFORMATION
  Report Type: Spontaneous
  Country: GB (occurrence: GB)
  Receive Date: 20190225
  Receipt Date: 20190225
  Transmission Date: 20190418
  Serious: Yes (Other)
  Sender: FDA-Public Use
  Company Number: GB-B.I. PHARMACEUTICALS,INC./RIDGEFIELD-2019-12-000629

PATIENT
  Age: 75 Year
  Sex: Male
  Weight: 94 kg

DRUGS (9)
  1. WARFARIN SODIUM. [Concomitant]
     Active Substance: WARFARIN SODIUM
     Indication: ANTICOAGULANT THERAPY
     Dosage: TAKE DOSE SPECIFIED BY THE ANTICOAGULANT CLINIC
     Route: 065
     Dates: start: 20170215, end: 20181203
  2. CODEINE PHOSPHATE [Concomitant]
     Active Substance: CODEINE PHOSPHATE
     Indication: PAIN
     Dosage: ONE OR TWO TO BE TAKEN FOUR TIMES EACH DAY (BEST USED WITH PARACETAMOL); AS REQUIRED
     Route: 065
     Dates: start: 20190104
  3. LISINOPRIL. [Concomitant]
     Active Substance: LISINOPRIL
     Indication: HYPERTENSION
     Route: 065
     Dates: start: 20180307
  4. ATORVASTATIN [Concomitant]
     Active Substance: ATORVASTATIN
     Indication: HYPERCHOLESTEROLAEMIA
     Dosage: EVERY NIGHT
     Route: 065
     Dates: start: 20170426
  5. PRADAXA [Suspect]
     Active Substance: DABIGATRAN ETEXILATE MESYLATE
     Indication: PRODUCT USED FOR UNKNOWN INDICATION
     Route: 065
     Dates: start: 20181203, end: 20190121
  6. NITROMIN [Concomitant]
     Indication: PRODUCT USED FOR UNKNOWN INDICATION
     Dosage: AS DIRECTED; AS REQUIRED
     Route: 065
     Dates: start: 20170426
  7. AMITRIPTYLINE HYDROCHLORIDE. [Concomitant]
     Active Substance: AMITRIPTYLINE HYDROCHLORIDE
     Indication: PRODUCT USED FOR UNKNOWN INDICATION
     Dosage: EACH NIGHT AS DIRECTED
     Route: 065
     Dates: start: 20190104
  8. METFORMIN [Concomitant]
     Active Substance: METFORMIN HYDROCHLORIDE
     Indication: PRODUCT USED FOR UNKNOWN INDICATION
     Dosage: BEFORE MEALS
     Route: 065
     Dates: start: 20170426
  9. SITAGLIPTIN [Concomitant]
     Active Substance: SITAGLIPTIN
     Indication: PRODUCT USED FOR UNKNOWN INDICATION
     Route: 065
     Dates: start: 20170426

REACTIONS (4)
  - Nausea [Unknown]
  - Jaundice [Unknown]
  - Abdominal pain [Unknown]
  - Drug-induced liver injury [Recovering/Resolving]

NARRATIVE: CASE EVENT DATE: 20190118
